FAERS Safety Report 5194375-6 (Version None)
Quarter: 2006Q4

REPORT INFORMATION
  Report Type: 
  Country: None (occurrence: None)
  Receive Date: 20061228
  Receipt Date: 20061218
  Transmission Date: 20070319
  Serious: Yes (Death, Other)
  Sender: FDA-Public Use
  Company Number: US-PFIZER INC-2006154808

PATIENT
  Age: 32 Year
  Sex: Female

DRUGS (4)
  1. NEURONTIN [Suspect]
     Indication: MYALGIA
  2. HYDROCODONE BITARTRATE [Concomitant]
  3. SOMA [Concomitant]
  4. ALL OTHER THERAPEUTIC PRODUCTS [Concomitant]

REACTIONS (2)
  - INTENTIONAL DRUG MISUSE [None]
  - OVERDOSE [None]
